FAERS Safety Report 9031433 (Version 6)
Quarter: 2013Q1

REPORT INFORMATION
  Report Type: Report from Study
  Country: US (occurrence: US)
  Receive Date: 20130124
  Receipt Date: 20130328
  Transmission Date: 20140127
  Serious: Yes (Life-Threatening, Hospitalization)
  Sender: FDA-Public Use
  Company Number: US-PFIZER INC-2013002721

PATIENT
  Age: 14 Year
  Sex: Female
  Weight: 47.5 kg

DRUGS (5)
  1. DESVENLAFAXINE SUCCINATE MONOHYDRATE [Suspect]
     Indication: MAJOR DEPRESSION
     Dosage: 25 MG (1 PILL), 1X/DAY
     Route: 048
     Dates: start: 20121204, end: 20121209
  2. DESVENLAFAXINE SUCCINATE MONOHYDRATE [Suspect]
     Dosage: 35 MG (2 PILLS), 1X/DAY
     Route: 048
     Dates: start: 20121210, end: 20121211
  3. DESVENLAFAXINE SUCCINATE MONOHYDRATE [Suspect]
     Dosage: 25 MG (1 PILL), 1X/DAY
     Route: 048
     Dates: start: 20121212, end: 20121219
  4. DESVENLAFAXINE SUCCINATE MONOHYDRATE [Suspect]
     Dosage: 35 MG (2 PILLS), 1X/DAY
     Route: 048
     Dates: start: 20121220, end: 20121226
  5. DESVENLAFAXINE SUCCINATE MONOHYDRATE [Suspect]
     Dosage: 50 MG (2 PILLS), 1X/DAY
     Route: 048
     Dates: start: 20121227, end: 20121231

REACTIONS (2)
  - Suicide attempt [Recovered/Resolved]
  - Suicidal ideation [Recovered/Resolved]
